FAERS Safety Report 7380543-1 (Version None)
Quarter: 2011Q1

REPORT INFORMATION
  Report Type: 
  Country: None (occurrence: None)
  Receive Date: 20110329
  Receipt Date: 20091031
  Transmission Date: 20110831
  Serious: Yes (Hospitalization, Other)
  Sender: FDA-Public Use
  Company Number: US-BAYER-200938377NA

PATIENT
  Sex: Female
  Weight: 54.422 kg

DRUGS (27)
  1. VANCOMYCIN [Concomitant]
     Dosage: 1 G, UNK
     Route: 042
     Dates: start: 20050928, end: 20050928
  2. PLAVIX [Concomitant]
     Dosage: 300 MG, UNK
     Route: 048
     Dates: start: 20050927, end: 20050928
  3. MANNITOL [Concomitant]
     Dosage: UNK
     Dates: start: 20050928, end: 20050928
  4. ZOLPIDEM [Concomitant]
     Route: 048
  5. PANCURONIUM BROMIDE [Concomitant]
     Dosage: UNK
     Route: 042
     Dates: start: 20050928, end: 20050928
  6. FRESH FROZEN PLASMA [Concomitant]
     Dosage: 15 U, UNK
     Route: 042
     Dates: start: 20050928
  7. TRASYLOL [Suspect]
     Indication: VENTRICLE RUPTURE
  8. PLAVIX [Concomitant]
     Dosage: 75 MG, QD
     Route: 048
     Dates: start: 20050928
  9. INDERAL LA [Concomitant]
     Dosage: 80 MG, QD
     Route: 048
  10. ACETAMINOPHEN [Concomitant]
     Dosage: 325 MG, UNK
     Route: 048
  11. EPHEDRINE [Concomitant]
     Dosage: UNK
     Route: 042
     Dates: start: 20050928, end: 20050928
  12. PROTAMINE SULFATE [Concomitant]
     Dosage: UNK
     Route: 042
     Dates: start: 20050928, end: 20050928
  13. TRASYLOL [Suspect]
     Indication: ARTERIAL RUPTURE
     Dosage: INITIAL DOSE 1ML
     Dates: start: 20050928, end: 20050929
  14. LEXAPRO [Concomitant]
     Indication: DEPRESSION
     Dosage: 5 MG, QD
     Route: 048
  15. DIGOXIN [Concomitant]
     Dosage: 0.125 MG, QD
  16. HEPARIN SODIUM [Concomitant]
     Dosage: UNK
     Route: 042
     Dates: start: 20050928, end: 20050928
  17. ALBUMIN (HUMAN) [Concomitant]
     Dosage: UNK
     Dates: start: 20050928, end: 20050928
  18. TRASYLOL [Suspect]
     Indication: CORONARY ARTERY BYPASS
     Dosage: 50 ML/HR INTO POST-OPERATIVE PERIOD
     Route: 042
     Dates: start: 20050928, end: 20050929
  19. TRASYLOL [Suspect]
     Indication: CARDIAC TAMPONADE
  20. CEFUROXIME [Concomitant]
     Dosage: 1.5 G, UNK
     Route: 042
     Dates: start: 20050928, end: 20050928
  21. RED BLOOD CELLS [Concomitant]
     Dosage: 15 U, UNK
     Route: 042
     Dates: start: 20050928
  22. CARDIOPLEGIA [Concomitant]
     Dosage: UNK
     Dates: start: 20050928, end: 20050928
  23. CLONIDINE [Concomitant]
     Indication: HYPERTENSION
     Dosage: 0.1 MG, TID
     Route: 048
  24. ISOFLURANE [Concomitant]
     Dosage: UNK
     Dates: start: 20050928, end: 20050928
  25. FENTANYL [Concomitant]
     Dosage: UNK
     Route: 042
     Dates: start: 20050928, end: 20050928
  26. PROPOFOL [Concomitant]
     Dosage: UNK
     Route: 042
     Dates: start: 20050928, end: 20050928
  27. PLATELETS [Concomitant]
     Dosage: 80 U, UNK
     Route: 042
     Dates: start: 20050928

REACTIONS (10)
  - RENAL INJURY [None]
  - INJURY [None]
  - STRESS [None]
  - FEAR [None]
  - RENAL FAILURE [None]
  - EMOTIONAL DISTRESS [None]
  - UNEVALUABLE EVENT [None]
  - PAIN [None]
  - RENAL IMPAIRMENT [None]
  - ANXIETY [None]
